FAERS Safety Report 19397203 (Version 2)
Quarter: 2021Q3

REPORT INFORMATION
  Report Type: Other
  Country: US (occurrence: US)
  Receive Date: 20210609
  Receipt Date: 20210707
  Transmission Date: 20211014
  Serious: Yes (Death, Hospitalization)
  Sender: FDA-Public Use
  Company Number: US-NEUROCRINE BIOSCIENCES INC.-2021NBI02893

PATIENT

DRUGS (4)
  1. ZYPREXA [Concomitant]
     Active Substance: OLANZAPINE
     Dosage: 7.5 MILLIGRAM, QHS
  2. INGREZZA [Suspect]
     Active Substance: VALBENAZINE
     Indication: TARDIVE DYSKINESIA
     Dosage: 40 MILLIGRAM, QD
     Route: 048
     Dates: start: 202009, end: 2021
  3. IMIPRAMINE [Concomitant]
     Active Substance: IMIPRAMINE
     Dosage: 20 MILLIGRAM, QHS
  4. BUSPIRONE [Concomitant]
     Active Substance: BUSPIRONE HYDROCHLORIDE
     Dosage: 20 MILLIGRAM, TID

REACTIONS (1)
  - Death [Fatal]

NARRATIVE: CASE EVENT DATE: 20210520
